FAERS Safety Report 7511198-0 (Version None)
Quarter: 2011Q2

REPORT INFORMATION
  Report Type: 
  Country: None (occurrence: None)
  Receive Date: 20110531
  Receipt Date: 20110516
  Transmission Date: 20111010
  Serious: Yes (Hospitalization, Other)
  Sender: FDA-Public Use
  Company Number: PHHY2011MX42530

PATIENT
  Age: 21 Year
  Sex: Male

DRUGS (5)
  1. MYCOPHENOLATE MEFETIL [Suspect]
     Indication: RENAL TRANSPLANT
  2. SIROLIMUS [Concomitant]
     Indication: IMMUNOSUPPRESSION
  3. CYCLOSPORINE [Concomitant]
     Indication: RENAL TRANSPLANT
  4. PREDNISONE [Concomitant]
     Indication: IMMUNOSUPPRESSION
  5. METHYLPREDNISOLONE [Concomitant]

REACTIONS (5)
  - CREATININE RENAL CLEARANCE DECREASED [None]
  - GLOMERULONEPHRITIS MEMBRANOPROLIFERATIVE [None]
  - PROTEINURIA [None]
  - COMPLICATIONS OF TRANSPLANTED KIDNEY [None]
  - BLOOD CREATININE INCREASED [None]
